FAERS Safety Report 7807935-8 (Version None)
Quarter: 2011Q4

REPORT INFORMATION
  Report Type: 
  Country: None (occurrence: None)
  Receive Date: 20111011
  Receipt Date: 20111011
  Transmission Date: 20120403
  Serious: Yes (Other)
  Sender: FDA-Public Use
  Company Number: None

PATIENT
  Sex: Female
  Weight: 56.699 kg

DRUGS (1)
  1. BACTRIM [Suspect]
     Indication: SINUSITIS
     Dosage: 1 TABLET
     Route: 048
     Dates: start: 20110928, end: 20111001

REACTIONS (7)
  - NAUSEA [None]
  - MUSCULOSKELETAL STIFFNESS [None]
  - DECREASED APPETITE [None]
  - NECK PAIN [None]
  - HALLUCINATION [None]
  - FATIGUE [None]
  - PAIN IN EXTREMITY [None]
